FAERS Safety Report 13592278 (Version 1)
Quarter: 2017Q2

REPORT INFORMATION
  Report Type: Spontaneous
  Country: US (occurrence: US)
  Receive Date: 20170529
  Receipt Date: 20170529
  Transmission Date: 20170830
  Serious: No
  Sender: FDA-Public Use
  Company Number: US-B.I. PHARMACEUTICALS,INC./RIDGEFIELD-2017-BI-029962

PATIENT
  Age: 84 Year
  Sex: Female

DRUGS (2)
  1. COMBIVENT [Suspect]
     Active Substance: ALBUTEROL SULFATE\IPRATROPIUM BROMIDE
     Indication: DYSPNOEA
     Dosage: ONE PUFF DAILY;  FORM STRENGTH, UNIT DOSE AND DAILY DOSE: 20 MCG / 100 MCG; FORMULATION: INHALATION
     Route: 045
     Dates: start: 2015, end: 2015
  2. COMBIVENT [Suspect]
     Active Substance: ALBUTEROL SULFATE\IPRATROPIUM BROMIDE
     Dosage: ONE PUFF DAILY;  FORM STRENGTH, UNIT DOSE AND DAILY DOSE: 20 MCG / 100 MCG; FORMULATION: INHALATION
     Route: 055
     Dates: start: 20170523

REACTIONS (3)
  - Diarrhoea [Not Recovered/Not Resolved]
  - Drug ineffective [Unknown]
  - Dyspnoea [Not Recovered/Not Resolved]

NARRATIVE: CASE EVENT DATE: 2015
